FAERS Safety Report 23304643 (Version 1)
Quarter: 2023Q4

REPORT INFORMATION
  Report Type: Spontaneous
  Country: US (occurrence: US)
  Receive Date: 20231218
  Receipt Date: 20231218
  Transmission Date: 20240110
  Serious: Yes (Other)
  Sender: FDA-Public Use
  Company Number: US-002147023-NVSC2023US265632

PATIENT

DRUGS (3)
  1. LETROZOLE [Suspect]
     Active Substance: LETROZOLE
     Indication: Breast cancer metastatic
     Dosage: UNK
     Route: 065
  2. IBRANCE [Concomitant]
     Active Substance: PALBOCICLIB
     Indication: Product used for unknown indication
     Dosage: UNK, 1 TABLET BY MOUTH DAILY FOR 21 DAYS ON, FOLLOWED BY 7 DAYS OFF. REPEAT EVERY 28 DAYS, 63 CAPSUL
     Route: 065
     Dates: start: 20220628
  3. XGEVA [Concomitant]
     Active Substance: DENOSUMAB
     Indication: Product used for unknown indication
     Dosage: UNK (MONTHLY)
     Route: 065

REACTIONS (1)
  - Metastases to bone [Unknown]
